FAERS Safety Report 12351714 (Version 1)
Quarter: 2016Q2

REPORT INFORMATION
  Report Type: Spontaneous
  Country: US (occurrence: US)
  Receive Date: 20160510
  Receipt Date: 20160510
  Transmission Date: 20160815
  Serious: No
  Sender: FDA-Public Use
  Company Number: ADR-2015-01181

PATIENT
  Age: 69 Year
  Sex: Female

DRUGS (3)
  1. LIORESAL [Suspect]
     Active Substance: BACLOFEN
     Route: 037
  2. BACLOFEN. [Suspect]
     Active Substance: BACLOFEN
     Route: 048
     Dates: start: 201504
  3. BACLOFEN. [Suspect]
     Active Substance: BACLOFEN
     Dosage: 125 MCG/ML
     Route: 037
     Dates: start: 20150412

REACTIONS (6)
  - Muscle spasms [Unknown]
  - Skin wound [Unknown]
  - Overdose [Unknown]
  - Underdose [Unknown]
  - Hypotonia [Unknown]
  - Pruritus [Unknown]

NARRATIVE: CASE EVENT DATE: 201504
